FAERS Safety Report 18700473 (Version 2)
Quarter: 2022Q3

REPORT INFORMATION
  Report Type: Report from Study
  Country: CA (occurrence: CA)
  Receive Date: 20210105
  Receipt Date: 20220711
  Transmission Date: 20221027
  Serious: Yes (Other)
  Sender: FDA-Public Use
  Company Number: CA-GLAXOSMITHKLINE-CA2020AMR243092

PATIENT

DRUGS (1)
  1. MEPOLIZUMAB [Suspect]
     Active Substance: MEPOLIZUMAB
     Indication: Asthma
     Dosage: 100 MG, Z (MONTHLY)
     Route: 042
     Dates: start: 20170518

REACTIONS (9)
  - Diabetes mellitus [Unknown]
  - Mast cell activation syndrome [Unknown]
  - Antiphospholipid syndrome [Unknown]
  - Neuropathic arthropathy [Unknown]
  - Skin lesion [Unknown]
  - Overlap syndrome [Unknown]
  - Anaemia [Unknown]
  - Osteoporosis [Unknown]
  - Osteoarthritis [Unknown]

NARRATIVE: CASE EVENT DATE: 20200301
